FAERS Safety Report 9272341 (Version 2)
Quarter: 2013Q3

REPORT INFORMATION
  Report Type: Report from Study
  Country: DE (occurrence: DE)
  Receive Date: 20130506
  Receipt Date: 20130809
  Transmission Date: 20140515
  Serious: Yes (Hospitalization, Other)
  Sender: FDA-Public Use
  Company Number: DE-ABBOTT-13P-062-1075737-00

PATIENT
  Age: 78 Year
  Sex: Female
  Weight: 50 kg

DRUGS (7)
  1. HUMIRA [Suspect]
     Indication: RHEUMATOID ARTHRITIS
     Route: 058
     Dates: start: 200512, end: 201207
  2. SULFASALAZINE [Concomitant]
     Indication: RHEUMATOID ARTHRITIS
     Route: 048
  3. PREDNISOLONE [Concomitant]
     Indication: RHEUMATOID ARTHRITIS
     Dosage: 5-10 MG
     Route: 048
  4. ANALGESICS [Concomitant]
     Indication: PRODUCT USED FOR UNKNOWN INDICATION
  5. METOPROLOL [Concomitant]
     Indication: HYPERTENSION
  6. NITRENDIPIN [Concomitant]
     Indication: HYPERTENSION
  7. NOVAMINSULFON [Concomitant]
     Indication: OSTEOARTHRITIS

REACTIONS (9)
  - Skin lesion [Recovered/Resolved]
  - Renal failure [Unknown]
  - Pyeloplasty [Recovered/Resolved]
  - Urinary tract infection [Unknown]
  - Deep vein thrombosis [Recovered/Resolved]
  - Oedema [Recovered/Resolved]
  - Pelvi-ureteric obstruction [Unknown]
  - Drug intolerance [Unknown]
  - Infection [Unknown]
